FAERS Safety Report 5385624-X (Version None)
Quarter: 2007Q3

REPORT INFORMATION
  Report Type: 
  Country: None (occurrence: None)
  Receive Date: 20070712
  Receipt Date: 20070702
  Transmission Date: 20080115
  Serious: Yes (Hospitalization, Other)
  Sender: FDA-Public Use
  Company Number: US-ASTRAZENECA-2007UW01935

PATIENT
  Age: 10444 Day
  Sex: Female
  Weight: 70.5 kg

DRUGS (43)
  1. SEROQUEL [Suspect]
     Indication: SCHIZOAFFECTIVE DISORDER
     Dosage: 100 MG TO 300 MG
     Route: 048
     Dates: start: 20030814, end: 20060712
  2. RISPERDAL [Concomitant]
     Dates: start: 19990705
  3. RISPERDAL [Concomitant]
     Dates: start: 20000619
  4. RISPERDAL [Concomitant]
     Dates: start: 20061018
  5. ABILIFY [Concomitant]
     Dates: start: 20030606
  6. ABILIFY [Concomitant]
     Dates: start: 20050902
  7. ACCUPRIL [Concomitant]
     Dates: start: 20010117
  8. AVANDIA [Concomitant]
     Dates: start: 20010515, end: 20060914
  9. BIAXIN [Concomitant]
     Dates: start: 20040112
  10. CLOTIMAZOLE [Concomitant]
     Dates: start: 20041104
  11. GLUCOPHAGE [Concomitant]
     Dates: start: 20001211
  12. GLUCOTROL XL [Concomitant]
     Dates: start: 20010307
  13. GLYBURIDE [Concomitant]
     Dates: start: 20001110, end: 20001211
  14. GLIPIZIDE [Concomitant]
     Dates: start: 20031016
  15. INSULIN [Concomitant]
  16. LIPITOR [Concomitant]
     Dates: start: 20060405
  17. LAMICTAL [Concomitant]
  18. LORAZEPAM [Concomitant]
     Dates: start: 19990705
  19. MEDROXYPROGESTERONE [Concomitant]
  20. NAPROXEN [Concomitant]
     Dates: start: 20030516
  21. NOVOLOG [Concomitant]
     Dates: start: 20041104
  22. PROMETHAZINE [Concomitant]
  23. PAXIL [Concomitant]
     Dates: start: 19990705
  24. PAXIL [Concomitant]
     Dates: start: 20030604
  25. PAXIL [Concomitant]
     Dates: start: 20030814
  26. PAXIL [Concomitant]
     Dates: start: 20030913
  27. PROZAC [Concomitant]
  28. NEOMYCIN [Concomitant]
     Dates: start: 20050203
  29. PAROXETINE [Concomitant]
     Dates: start: 20050408
  30. ASPIRIN [Concomitant]
     Dates: start: 20050526
  31. LESCOL [Concomitant]
     Dates: start: 20051006
  32. KETOCONAZOLE [Concomitant]
     Dates: start: 20040403
  33. HUMULIN R [Concomitant]
     Dates: start: 20060605
  34. FLUOXETINE [Concomitant]
     Dates: start: 20060125
  35. PREVACID [Concomitant]
     Dates: start: 20060330
  36. ECONAZOLE NITRATE [Concomitant]
     Dates: start: 20060530
  37. BETAMETHASONE [Concomitant]
     Dates: start: 20060613
  38. CIPROFLOXACIN [Concomitant]
     Dates: start: 20060714
  39. DEPAKOTE [Concomitant]
     Dates: start: 20060723
  40. PRILOSEC [Concomitant]
     Dates: start: 20060815
  41. LYRICA [Concomitant]
     Dates: start: 20060914
  42. METOPROLOL SUCCINATE [Concomitant]
     Dates: start: 20061016
  43. VYTORIN [Concomitant]
     Dates: start: 20061016

REACTIONS (17)
  - ARTHRITIS [None]
  - BLOOD CHOLESTEROL INCREASED [None]
  - CEREBROVASCULAR ACCIDENT [None]
  - CONVULSION [None]
  - DIABETIC NEUROPATHY [None]
  - DYSPNOEA [None]
  - HAEMATOCHEZIA [None]
  - HYPERCALCAEMIA [None]
  - HYPERLIPIDAEMIA [None]
  - HYPERTENSION [None]
  - MENSTRUAL DISORDER [None]
  - OSTEOPOROSIS [None]
  - PALPITATIONS [None]
  - RASH GENERALISED [None]
  - TACHYCARDIA [None]
  - TRANSIENT ISCHAEMIC ATTACK [None]
  - TYPE 2 DIABETES MELLITUS [None]
